FAERS Safety Report 10250704 (Version 14)
Quarter: 2018Q2

REPORT INFORMATION
  Report Type: Report from Study
  Country: AT (occurrence: AT)
  Receive Date: 20140620
  Receipt Date: 20180430
  Transmission Date: 20180711
  Serious: Yes (Death, Hospitalization, Other)
  Sender: FDA-Public Use
  Company Number: AT-INCYTE CORPORATION-2014IN000800

PATIENT

DRUGS (56)
  1. UROSIN                             /00003301/ [Concomitant]
     Indication: HYPERURICAEMIA
     Dosage: UNK
     Route: 065
     Dates: start: 20110524, end: 20150109
  2. GALVUS [Concomitant]
     Active Substance: VILDAGLIPTIN
     Indication: TYPE 2 DIABETES MELLITUS
     Dosage: UNK
     Route: 065
     Dates: start: 20131029, end: 20150208
  3. PENTALOC [Concomitant]
     Indication: GASTRITIS PROPHYLAXIS
  4. LASIX [Concomitant]
     Active Substance: FUROSEMIDE
     Dosage: UNK
     Route: 065
     Dates: start: 201310, end: 20150208
  5. VERTIROSAN [Concomitant]
     Indication: VERTIGO
     Dosage: 50 MG, UNK
     Route: 065
     Dates: start: 20140204
  6. VIDAZA [Concomitant]
     Active Substance: AZACITIDINE
     Dosage: UNK
     Route: 065
     Dates: start: 20140908, end: 20140910
  7. PRIVIGEN [Concomitant]
     Active Substance: HUMAN IMMUNOGLOBULIN G
     Indication: INFECTION PROPHYLAXIS
  8. SOLUDACORTIN [Concomitant]
     Indication: VOMITING
     Dosage: UNK
     Route: 065
     Dates: start: 20140204, end: 20140205
  9. VIDAZA [Concomitant]
     Active Substance: AZACITIDINE
     Indication: CHEMOTHERAPY
     Dosage: UNK
     Route: 065
     Dates: start: 20140805, end: 20141209
  10. RESONIUM [Concomitant]
     Active Substance: SODIUM POLYSTYRENE SULFONATE
     Indication: HYPERKALAEMIA
     Dosage: UNK
     Route: 065
     Dates: start: 20150109, end: 20150208
  11. NICOLAN [Concomitant]
     Indication: CORONARY ARTERY DISEASE
     Dosage: UNK
     Route: 065
     Dates: start: 20140806, end: 20150208
  12. JAKAVI [Suspect]
     Active Substance: RUXOLITINIB
     Dosage: 30 MG, UNK
     Route: 048
     Dates: start: 20140108, end: 20140121
  13. JAKAVI [Suspect]
     Active Substance: RUXOLITINIB
     Dosage: 30 MG, UNK
     Route: 048
     Dates: start: 20140318, end: 20150124
  14. PENTALOC [Concomitant]
     Indication: PROPHYLAXIS
     Dosage: UNK
     Route: 065
     Dates: start: 201310, end: 201502
  15. OLEOVIT D3 [Concomitant]
     Active Substance: CHOLECALCIFEROL
     Indication: VITAMIN D DEFICIENCY
     Dosage: UNK
     Route: 065
     Dates: end: 20140601
  16. SOLUDACORTIN [Concomitant]
     Indication: VERTIGO
     Dosage: UNK
     Route: 065
     Dates: start: 20140204
  17. TRENTAL [Concomitant]
     Active Substance: PENTOXIFYLLINE
     Indication: VOMITING
     Dosage: UNK
     Route: 065
     Dates: start: 20140204, end: 20140221
  18. TRENTAL [Concomitant]
     Active Substance: PENTOXIFYLLINE
     Indication: HYPERHIDROSIS
  19. VIDAZA [Concomitant]
     Active Substance: AZACITIDINE
     Dosage: UNK
     Route: 065
     Dates: start: 20141201, end: 20141205
  20. JAKAVI [Suspect]
     Active Substance: RUXOLITINIB
     Dosage: UNK
     Route: 048
  21. THROMBO ASS [Concomitant]
     Active Substance: ASPIRIN
     Indication: THROMBOSIS PROPHYLAXIS
     Dosage: 50 MG, UNK
     Route: 065
     Dates: end: 20140805
  22. TRENTAL [Concomitant]
     Active Substance: PENTOXIFYLLINE
     Indication: VERTIGO
     Dosage: UNK
     Route: 065
     Dates: start: 20140204
  23. VIDAZA [Concomitant]
     Active Substance: AZACITIDINE
     Dosage: UNK
     Route: 065
     Dates: start: 20140807, end: 20140807
  24. VIDAZA [Concomitant]
     Active Substance: AZACITIDINE
     Dosage: UNK
     Route: 065
     Dates: start: 20140902, end: 20140905
  25. ROCEPHIN [Concomitant]
     Active Substance: CEFTRIAXONE SODIUM
     Indication: PROPHYLAXIS
     Dosage: UNK
     Route: 065
     Dates: start: 20141111, end: 20141111
  26. TRITACE [Concomitant]
     Active Substance: RAMIPRIL
     Indication: HYPERTENSION
     Dosage: UNK
     Route: 065
     Dates: start: 20140630, end: 20150109
  27. AUGMENTIN [Concomitant]
     Active Substance: AMOXICILLIN\CLAVULANATE POTASSIUM
     Indication: PYREXIA
     Dosage: UNK
     Route: 065
     Dates: start: 20141111, end: 20141117
  28. MIRTAZAPIN [Concomitant]
     Active Substance: MIRTAZAPINE
     Indication: MAJOR DEPRESSION
     Dosage: UNK
     Route: 065
     Dates: start: 20150109, end: 20150208
  29. JAKAVI [Suspect]
     Active Substance: RUXOLITINIB
     Indication: MYELOFIBROSIS
     Dosage: 7.5 MG, (6 TIMES A WEEK)
     Route: 048
     Dates: start: 20120710
  30. JAKAVI [Suspect]
     Active Substance: RUXOLITINIB
     Indication: GENERAL PHYSICAL HEALTH DETERIORATION
     Dosage: 15 MG, BID
     Route: 048
     Dates: start: 20140128
  31. SORTIS [Concomitant]
     Active Substance: ATORVASTATIN
     Dosage: UNK
     Route: 065
     Dates: start: 201310, end: 20150208
  32. SOLUDACORTIN [Concomitant]
     Indication: HYPERHIDROSIS
  33. VIDAZA [Concomitant]
     Active Substance: AZACITIDINE
     Dosage: UNK
     Route: 065
     Dates: start: 20140813, end: 20140813
  34. OLEOVIT D3 [Concomitant]
     Active Substance: CHOLECALCIFEROL
     Dosage: UNK
     Route: 065
     Dates: start: 201310, end: 20140601
  35. VERTIROSAN [Concomitant]
     Indication: HYPERHIDROSIS
  36. VIDAZA [Concomitant]
     Active Substance: AZACITIDINE
     Dosage: UNK
     Route: 065
     Dates: start: 20141209, end: 20141209
  37. VIDAZA [Concomitant]
     Active Substance: AZACITIDINE
     Dosage: UNK
     Route: 065
     Dates: start: 20140805, end: 20140805
  38. ROCEPHIN [Concomitant]
     Active Substance: CEFTRIAXONE SODIUM
     Indication: INFECTION PROPHYLAXIS
  39. JAKAVI [Suspect]
     Active Substance: RUXOLITINIB
     Dosage: 15 MG, UNK
     Route: 048
     Dates: start: 20140207, end: 20140317
  40. JAKAVI [Suspect]
     Active Substance: RUXOLITINIB
     Dosage: 30 MG, UNK
     Route: 048
     Dates: start: 20140127, end: 20140206
  41. CONCOR [Concomitant]
     Active Substance: BISOPROLOL FUMARATE
     Indication: ANGINA PECTORIS
     Dosage: UNK
     Route: 065
     Dates: start: 20131014, end: 20150208
  42. SORTIS [Concomitant]
     Active Substance: ATORVASTATIN
     Indication: HYPERLIPIDAEMIA
     Dosage: UNK
     Route: 065
     Dates: end: 20150208
  43. THROMBO ASS [Concomitant]
     Active Substance: ASPIRIN
     Dosage: 50 MG, UNK
     Route: 065
     Dates: start: 201402, end: 20140805
  44. NICOLAN//NICORANDIL [Concomitant]
     Indication: CORONARY ARTERY DISEASE
     Dosage: UNK
     Route: 065
     Dates: start: 20140806, end: 20150208
  45. VERTIROSAN [Concomitant]
     Indication: VOMITING
     Dosage: 50 MG, UNK
     Route: 065
     Dates: start: 20140204, end: 20140221
  46. VIDAZA [Concomitant]
     Active Substance: AZACITIDINE
     Dosage: UNK
     Route: 065
     Dates: start: 20140811, end: 20140811
  47. SEROXAT [Concomitant]
     Active Substance: PAROXETINE HYDROCHLORIDE
     Indication: DEPRESSION
     Dosage: UNK
     Route: 065
     Dates: start: 20141215, end: 20150108
  48. AUGMENTIN [Concomitant]
     Active Substance: AMOXICILLIN\CLAVULANATE POTASSIUM
     Indication: PYREXIA
     Dosage: UNK
     Route: 065
     Dates: start: 20141111, end: 20141117
  49. JAKAVI [Suspect]
     Active Substance: RUXOLITINIB
     Dosage: 15 MG, UNK
     Route: 048
     Dates: start: 20140122, end: 20140126
  50. DANCOR [Concomitant]
     Active Substance: NICORANDIL
     Indication: CORONARY ARTERY DISEASE
     Dosage: UNK
     Route: 065
     Dates: start: 20110203, end: 20140805
  51. LASIX [Concomitant]
     Active Substance: FUROSEMIDE
     Indication: OEDEMA
     Dosage: UNK
     Route: 065
     Dates: end: 20150208
  52. VIDAZA [Concomitant]
     Active Substance: AZACITIDINE
     Dosage: UNK
     Route: 065
     Dates: start: 20141027, end: 20141031
  53. VIDAZA [Concomitant]
     Active Substance: AZACITIDINE
     Dosage: UNK
     Route: 065
     Dates: start: 20141103, end: 20141104
  54. PRIVIGEN [Concomitant]
     Active Substance: HUMAN IMMUNOGLOBULIN G
     Indication: PROPHYLAXIS
     Dosage: UNK
     Route: 065
     Dates: start: 20150105, end: 20150105
  55. MIRTAZAPIN [Concomitant]
     Active Substance: MIRTAZAPINE
     Indication: DEPRESSION
  56. UROSIN [Concomitant]
     Active Substance: ALLOPURINOL
     Indication: HYPERURICAEMIA
     Dosage: UNK
     Route: 065
     Dates: start: 20110524, end: 20150109

REACTIONS (16)
  - Cholecystitis [Recovered/Resolved]
  - White blood cell count increased [Unknown]
  - Anaemia [Unknown]
  - Myelofibrosis [Fatal]
  - Depression [Unknown]
  - Erysipelas [Recovered/Resolved]
  - General physical health deterioration [Recovered/Resolved]
  - Hypocalcaemia [Recovered/Resolved]
  - Haematoma [Not Recovered/Not Resolved]
  - Acute myeloid leukaemia [Fatal]
  - Cholecystitis [Recovered/Resolved]
  - Blood lactate dehydrogenase increased [Unknown]
  - General physical health deterioration [Unknown]
  - Thrombocytopenia [Unknown]
  - Nephropathy [Unknown]
  - Ascites [Unknown]

NARRATIVE: CASE EVENT DATE: 20140108
